FAERS Safety Report 8614466-4 (Version None)
Quarter: 2012Q3

REPORT INFORMATION
  Report Type: 
  Country: None (occurrence: None)
  Receive Date: 20120823
  Receipt Date: 20120812
  Transmission Date: 20120928
  Serious: Yes (Other)
  Sender: FDA-Public Use
  Company Number: US-ELI_LILLY_AND_COMPANY-US201207003173

PATIENT
  Sex: Female
  Weight: 38.549 kg

DRUGS (1)
  1. FORTEO [Suspect]
     Indication: OSTEOPOROSIS
     Dosage: 20 UG, QD
     Dates: start: 20120622, end: 20120717

REACTIONS (10)
  - RECTAL HAEMORRHAGE [None]
  - HAEMORRHAGE [None]
  - FATIGUE [None]
  - INSOMNIA [None]
  - HEADACHE [None]
  - MIGRAINE [None]
  - CONTUSION [None]
  - VASCULAR INJURY [None]
  - INJECTION SITE HAEMORRHAGE [None]
  - INJECTION SITE ERYTHEMA [None]
